FAERS Safety Report 16933762 (Version 2)
Quarter: 2019Q4

REPORT INFORMATION
  Report Type: Spontaneous
  Country: DE (occurrence: DE)
  Receive Date: 20191018
  Receipt Date: 20191218
  Transmission Date: 20200122
  Serious: Yes (Life-Threatening, Hospitalization, Other)
  Sender: FDA-Public Use
  Company Number: DE-GLAXOSMITHKLINE-DE2019GSK187116

PATIENT
  Age: 67 Year
  Sex: Female
  Weight: 110 kg

DRUGS (6)
  1. SUFENTANIL [Concomitant]
     Active Substance: SUFENTANIL
     Indication: ANAESTHESIA PROCEDURE
     Dosage: UNK
     Route: 040
     Dates: start: 20190826
  2. CEFUROXIME. [Suspect]
     Active Substance: CEFUROXIME
     Indication: PRODUCT USED FOR UNKNOWN INDICATION
     Dosage: 1.5 G, UNK (1.5 G GRAM(S) EVERY TOTAL (1.5 GRAM,1 TOTAL))
     Route: 042
     Dates: start: 20190826
  3. PROPOFOL. [Concomitant]
     Active Substance: PROPOFOL
     Indication: INDUCTION OF ANAESTHESIA
     Dosage: 330 MG, UNK (330 MG MILLGRAM(S) EVERY TOTAL (330 MG,1 TOTAL))
     Route: 040
     Dates: start: 20190826
  4. ROBINUL [Concomitant]
     Active Substance: GLYCOPYRROLATE
     Indication: BRADYCARDIA
     Dosage: 0.2 MG, UNK (0.2 MG MILLGRAM(S) EVERY TOTAL (0.2 MG,1 TOTAL))
     Route: 040
     Dates: start: 20190826
  5. REMIFENTANIL [Concomitant]
     Active Substance: REMIFENTANIL
     Indication: ANAESTHESIA PROCEDURE
     Dosage: 480 UG, UNK (480 MICROGRAM(S) EVERY HOURS (480 MCG,1 HR))
     Route: 040
     Dates: start: 20190826
  6. CLINDAMYCIN. [Suspect]
     Active Substance: CLINDAMYCIN
     Indication: PRODUCT USED FOR UNKNOWN INDICATION
     Dosage: 600 MG, UNK (600 MG MILLGRAM(S) EVERY TOTAL (600 MG,1 TOTAL))
     Route: 042
     Dates: start: 20190826

REACTIONS (4)
  - Flushing [Recovered/Resolved]
  - Anaphylactic reaction [Unknown]
  - Shock [Recovered/Resolved]
  - Cardiovascular disorder [Recovered/Resolved]

NARRATIVE: CASE EVENT DATE: 20190826
